FAERS Safety Report 19503185 (Version 2)
Quarter: 2022Q3

REPORT INFORMATION
  Report Type: Spontaneous
  Country: US (occurrence: US)
  Receive Date: 20210707
  Receipt Date: 20220914
  Transmission Date: 20221027
  Serious: Yes (Death, Hospitalization, Other)
  Sender: FDA-Public Use
  Company Number: US-AMGEN-USASP2021102587

PATIENT

DRUGS (2)
  1. BEVACIZUMAB [Suspect]
     Active Substance: BEVACIZUMAB
     Indication: Non-small cell lung cancer
     Dosage: UNK
     Route: 065
  2. BEVACIZUMAB [Suspect]
     Active Substance: BEVACIZUMAB
     Indication: Colorectal cancer metastatic

REACTIONS (7)
  - Death [Fatal]
  - Embolism [Unknown]
  - Unevaluable event [Unknown]
  - Haemorrhage [Unknown]
  - Gastrointestinal perforation [Unknown]
  - Hypertension [Unknown]
  - Cardiac failure congestive [Unknown]
